FAERS Safety Report 6051141-7 (Version None)
Quarter: 2009Q1

REPORT INFORMATION
  Report Type: 
  Country: None (occurrence: None)
  Receive Date: 20090121
  Receipt Date: 20090121
  Transmission Date: 20090719
  Serious: No
  Sender: FDA-Public Use
  Company Number: None

PATIENT
  Age: 58 Year
  Sex: Female
  Weight: 46.2669 kg

DRUGS (1)
  1. CIPROFLOXACIN HCL [Suspect]
     Indication: SINUSITIS
     Dosage: 1 TABLET TWICE DAILY PO
     Route: 048
     Dates: start: 20080912, end: 20080922

REACTIONS (1)
  - JOINT DISLOCATION [None]
